FAERS Safety Report 19669918 (Version 1)
Quarter: 2021Q3

REPORT INFORMATION
  Report Type: Spontaneous
  Country: BR (occurrence: BR)
  Receive Date: 20210806
  Receipt Date: 20210806
  Transmission Date: 20211014
  Serious: Yes (Other)
  Sender: FDA-Public Use
  Company Number: BR-ELI_LILLY_AND_COMPANY-BR202107011936

PATIENT
  Age: 55 Year
  Sex: Female

DRUGS (1)
  1. VERZENIOS 50MG [Suspect]
     Active Substance: ABEMACICLIB
     Indication: PRODUCT USED FOR UNKNOWN INDICATION
     Dosage: UNK, UNKNOWN
     Route: 065
     Dates: start: 202107

REACTIONS (2)
  - Bone marrow infiltration [Unknown]
  - Platelet count decreased [Unknown]
